FAERS Safety Report 10038397 (Version 1)
Quarter: 2014Q1

REPORT INFORMATION
  Report Type: Spontaneous
  Country: US (occurrence: None)
  Receive Date: 20140306
  Receipt Date: 20140306
  Transmission Date: 20141002
  Serious: Yes (Hospitalization)
  Sender: FDA-Public Use
  Company Number: 163-21880-13064289

PATIENT
  Age: 75 Year
  Sex: Female

DRUGS (8)
  1. REVLIMID (LENALIDOMIDE) (CAPSULES) [Suspect]
     Indication: MYELODYSPLASTIC SYNDROME
     Route: 048
     Dates: start: 20130123
  2. BABY ASPIRIN(ACETYLSALICYLIC ACID) [Concomitant]
  3. FOLIC ACID (FOLIC ACID) [Concomitant]
  4. GERITOL COMPLETE (GERITOL COMPLETE) [Concomitant]
  5. HYDROCHLOROTHIAZIDE (HYDROCHLOROTHIAZIDE) [Concomitant]
  6. LISINOPRIL (LISINOPRIL) [Concomitant]
  7. MULTI-MINERALS (MINERALS SUPPPLEMENT) [Concomitant]
  8. VITAMIN B-COMPLEX (VITAMIN B-COMPLEX) [Concomitant]

REACTIONS (1)
  - Drug ineffective [None]
